FAERS Safety Report 9269263 (Version 2)
Quarter: 2013Q2

REPORT INFORMATION
  Report Type: Spontaneous
  Country: US (occurrence: US)
  Receive Date: 20130503
  Receipt Date: 20130513
  Transmission Date: 20140414
  Serious: Yes (Hospitalization)
  Sender: FDA-Public Use
  Company Number: US-PFIZER INC-2013134484

PATIENT
  Age: 83 Year
  Sex: Male

DRUGS (6)
  1. SUTENT [Suspect]
     Indication: METASTATIC RENAL CELL CARCINOMA
     Dosage: 50 MG, DAILY
     Dates: start: 201304, end: 20130429
  2. ATENOLOL [Concomitant]
     Indication: HYPERTENSION
  3. JANUVIA [Concomitant]
     Dosage: UNK
  4. PROBIOTICS [Concomitant]
     Dosage: UNK
  5. GAS-X [Concomitant]
     Dosage: UNK
  6. TUMS [Concomitant]
     Dosage: UNK

REACTIONS (12)
  - Pancreatitis acute [Recovering/Resolving]
  - Hypertension [Unknown]
  - Epistaxis [Unknown]
  - Erythema [Unknown]
  - Pain in extremity [Unknown]
  - Flatulence [Unknown]
  - Dyspepsia [Unknown]
  - Feeling abnormal [Unknown]
  - Fatigue [Unknown]
  - Dry skin [Unknown]
  - Gait disturbance [Unknown]
  - Malaise [Unknown]
